FAERS Safety Report 4980022-2 (Version None)
Quarter: 2006Q2

REPORT INFORMATION
  Report Type: 
  Country: None (occurrence: None)
  Receive Date: 20060421
  Receipt Date: 20060414
  Transmission Date: 20061013
  Serious: Yes (Hospitalization, Other)
  Sender: FDA-Public Use
  Company Number: US-MERCK-0604USA02307

PATIENT
  Age: 63 Year
  Sex: Female

DRUGS (6)
  1. FOSAMAX [Suspect]
     Indication: OSTEOPOROSIS
     Route: 048
     Dates: start: 19960101, end: 20051101
  2. FOSAMAX [Suspect]
     Route: 048
     Dates: start: 20060101
  3. FLUOXETINE [Concomitant]
     Route: 065
  4. CITRACAL [Concomitant]
     Route: 065
  5. ASCORBIC ACID [Concomitant]
     Route: 065
  6. ACETAMINOPHEN AND PSEUDOEPHEDRINE HYDROCHLORIDE [Concomitant]
     Route: 065

REACTIONS (3)
  - BLOOD CALCIUM INCREASED [None]
  - BONE DENSITY DECREASED [None]
  - HYPERPARATHYROIDISM [None]
